FAERS Safety Report 5771634-7 (Version None)
Quarter: 2008Q2

REPORT INFORMATION
  Report Type: 
  Country: None (occurrence: None)
  Receive Date: 20080612
  Receipt Date: 20080612
  Transmission Date: 20081010
  Serious: No
  Sender: FDA-Public Use
  Company Number: None

PATIENT
  Age: 53 Year
  Sex: Female

DRUGS (1)
  1. TRAVATAN [Suspect]

REACTIONS (4)
  - EYE DISORDER [None]
  - EYE HAEMORRHAGE [None]
  - INSTILLATION SITE REACTION [None]
  - OCULAR HYPERAEMIA [None]
